FAERS Safety Report 9739404 (Version 1)
Quarter: 2013Q4

REPORT INFORMATION
  Report Type: Spontaneous
  Country: US (occurrence: US)
  Receive Date: 20131209
  Receipt Date: 20131209
  Transmission Date: 20140711
  Serious: No
  Sender: FDA-Public Use
  Company Number: US-BRISTOL-MYERS SQUIBB COMPANY-17338963

PATIENT
  Age: 66 Year
  Sex: Female

DRUGS (1)
  1. IXEMPRA [Suspect]
     Dosage: RECEIVED TWO INFUSIONS

REACTIONS (1)
  - Myalgia [Unknown]
